FAERS Safety Report 6409000-3 (Version None)
Quarter: 2009Q4

REPORT INFORMATION
  Report Type: 
  Country: None (occurrence: None)
  Receive Date: 20091019
  Receipt Date: 20091019
  Transmission Date: 20100525
  Serious: Yes (Hospitalization, Other)
  Sender: FDA-Public Use
  Company Number: None

PATIENT
  Age: 80 Year
  Sex: Female
  Weight: 55.7924 kg

DRUGS (14)
  1. MULTAQ [Suspect]
     Indication: ATRIAL FIBRILLATION
     Dosage: 400 MG BID PO
     Route: 048
     Dates: start: 20090925, end: 20091002
  2. COUMADIN [Concomitant]
  3. ASPIRIN [Concomitant]
  4. CALCIUM WITH VITAMIN D [Concomitant]
  5. DIGOXIN [Concomitant]
  6. SINGULAIR [Concomitant]
  7. SPIRIVA [Concomitant]
  8. PERCOCET [Concomitant]
  9. CENTRUM SILVER [Concomitant]
  10. XOPENEX [Concomitant]
  11. ADVAIR DISKUS 100/50 [Concomitant]
  12. BENADRYL [Concomitant]
  13. PREDNISONE [Concomitant]
  14. ZOLOFT [Concomitant]

REACTIONS (3)
  - DYSTONIA [None]
  - GASTROINTESTINAL DISORDER [None]
  - SEROTONIN SYNDROME [None]
